FAERS Safety Report 6103526-8 (Version None)
Quarter: 2009Q1

REPORT INFORMATION
  Report Type: 
  Country: None (occurrence: None)
  Receive Date: 20090305
  Receipt Date: 20090202
  Transmission Date: 20090719
  Serious: No
  Sender: FDA-Public Use
  Company Number: US-BAYER-200811935BCC

PATIENT
  Age: 72 Year
  Sex: Male
  Weight: 84 kg

DRUGS (9)
  1. ALEVE [Suspect]
     Indication: ARTHRALGIA
     Dosage: UNIT DOSE: 220 MG
     Route: 048
     Dates: start: 20080301, end: 20080423
  2. REGALIN [Concomitant]
  3. TAGAMET [Concomitant]
  4. PLAVIX [Concomitant]
  5. ATENOLOL [Concomitant]
  6. MECLIZINE [Concomitant]
  7. ASPIRIN [Concomitant]
  8. VERAPAMIL [Concomitant]
  9. OXYGEN [Concomitant]

REACTIONS (2)
  - ARTHRALGIA [None]
  - MEDICATION RESIDUE [None]
